FAERS Safety Report 14480883 (Version 1)
Quarter: 2018Q1

REPORT INFORMATION
  Report Type: Spontaneous
  Country: US (occurrence: US)
  Receive Date: 20180201
  Receipt Date: 20180201
  Transmission Date: 20180509
  Serious: Yes (Hospitalization)
  Sender: FDA-Public Use
  Company Number: None

PATIENT
  Age: 74 Year
  Sex: Male
  Weight: 97 kg

DRUGS (1)
  1. PRADAXA [Suspect]
     Active Substance: DABIGATRAN ETEXILATE MESYLATE
     Indication: ATRIAL FIBRILLATION
     Route: 048
     Dates: start: 20170413, end: 20170420

REACTIONS (4)
  - Weight decreased [None]
  - Abdominal pain upper [None]
  - Therapy cessation [None]
  - Gastrointestinal hypomotility [None]

NARRATIVE: CASE EVENT DATE: 20171030
